FAERS Safety Report 7236226 (Version 4)
Quarter: 2013Q4

REPORT INFORMATION
  Report Type: Spontaneous
  Country: US (occurrence: US)
  Receive Date: 20100104
  Receipt Date: 20131226
  Transmission Date: 20140711
  Serious: Yes (Hospitalization, Other)
  Sender: FDA-Public Use
  Company Number: US-BAYER-200943861NA

PATIENT
  Age: 24 Year
  Sex: Female
  Weight: 84.09 kg

DRUGS (10)
  1. YASMIN [Suspect]
     Dates: start: 200702, end: 20080131
  2. YAZ [Suspect]
     Route: 065
     Dates: start: 20090306, end: 20090918
  3. OCELLA [Suspect]
     Route: 065
  4. VITAMIN C [Concomitant]
     Indication: PRODUCT USED FOR UNKNOWN INDICATION
     Dosage: DAILY
     Route: 065
  5. IBUPROFEN [Concomitant]
     Indication: PRODUCT USED FOR UNKNOWN INDICATION
     Route: 065
  6. ST. JOHN^S WORT [Concomitant]
     Indication: PRODUCT USED FOR UNKNOWN INDICATION
     Route: 065
  7. HYDROCODONE W/APAP [Concomitant]
     Dosage: 5-500 MG
  8. PROMETHAZINE [Concomitant]
     Dosage: 25 MG, UNK
  9. DICYCLOMINE [Concomitant]
     Dosage: 20 MG, UNK
  10. ALDARA [Concomitant]
     Dosage: 5 %, UNK

REACTIONS (5)
  - Gallbladder disorder [Unknown]
  - Cholelithiasis [None]
  - Pain [Unknown]
  - Abdominal pain [Unknown]
  - Dyspepsia [Unknown]
